FAERS Safety Report 12102202 (Version 1)
Quarter: 2016Q1

REPORT INFORMATION
  Report Type: Other
  Country: US (occurrence: US)
  Receive Date: 20160222
  Receipt Date: 20160222
  Transmission Date: 20160526
  Serious: Yes (Other)
  Sender: FDA-Public Use
  Company Number: US-ACORDA-ACO_111962_2015

PATIENT
  Sex: Male
  Weight: 108.39 kg

DRUGS (2)
  1. AMPYRA [Suspect]
     Active Substance: DALFAMPRIDINE
     Indication: GAIT DISTURBANCE
     Dosage: 10 MG, BID
     Route: 048
     Dates: start: 201504
  2. GABAPENTIN. [Suspect]
     Active Substance: GABAPENTIN
     Indication: RELAPSING-REMITTING MULTIPLE SCLEROSIS
     Dosage: 1.5 DF, ONCE
     Dates: start: 20150520, end: 20150520

REACTIONS (7)
  - Abasia [Recovering/Resolving]
  - Drug ineffective [Unknown]
  - Drug dose omission [Unknown]
  - Vision blurred [Recovering/Resolving]
  - Back pain [Unknown]
  - Fatigue [Unknown]
  - Hypoaesthesia [Unknown]
